FAERS Safety Report 6177040-8 (Version None)
Quarter: 2009Q2

REPORT INFORMATION
  Report Type: 
  Country: None (occurrence: None)
  Receive Date: 20090501
  Receipt Date: 20090126
  Transmission Date: 20091009
  Serious: Yes (Death, Hospitalization)
  Sender: FDA-Public Use
  Company Number: US-ALEXION-A200800445

PATIENT
  Sex: Male

DRUGS (7)
  1. SOLIRIS [Suspect]
     Indication: PAROXYSMAL NOCTURNAL HAEMOGLOBINURIA
     Dosage: 600 MG, QW
     Route: 042
     Dates: start: 20081125, end: 20081202
  2. SOLIRIS [Suspect]
     Dosage: 600 MG, SINGLE
     Route: 042
     Dates: start: 20081212, end: 20081212
  3. EXJADE [Concomitant]
  4. LISINOPRIL [Concomitant]
  5. LYRICA [Concomitant]
  6. PREDNISONE [Concomitant]
  7. DANAZOL [Concomitant]
     Indication: PLATELET DISORDER

REACTIONS (3)
  - MASTOIDITIS [None]
  - PSEUDOMONAS INFECTION [None]
  - SEPSIS [None]
